FAERS Safety Report 7470607-6 (Version None)
Quarter: 2011Q2

REPORT INFORMATION
  Report Type: 
  Country: None (occurrence: None)
  Receive Date: 20110510
  Receipt Date: 20110509
  Transmission Date: 20111010
  Serious: Yes (Hospitalization, Other)
  Sender: FDA-Public Use
  Company Number: US-ELI_LILLY_AND_COMPANY-US200910005201

PATIENT
  Sex: Female
  Weight: 90.703 kg

DRUGS (25)
  1. MORPHINE [Concomitant]
     Dosage: UNK, AS NEEDED
  2. LOPRESSOR [Concomitant]
     Dosage: 50 MG, 2/D
  3. LISINOPRIL /USA/ [Concomitant]
     Dosage: 40 MG, DAILY (1/D)
  4. ARICEPT [Concomitant]
     Dosage: 5 MG, DAILY (1/D)
  5. ASPIRIN /USA/ [Concomitant]
     Dosage: 325 MG, DAILY (1/D)
  6. BYETTA [Suspect]
     Dosage: 10 UG, UNKNOWN
     Route: 065
     Dates: start: 20080226, end: 20100101
  7. ASPIRIN /USA/ [Concomitant]
     Dosage: 81 MG, DAILY (1/D)
  8. NITROGLYCERIN [Concomitant]
     Dosage: UNK, AS NEEDED
     Route: 060
  9. PRILOSEC [Concomitant]
     Indication: GASTROOESOPHAGEAL REFLUX DISEASE
     Dosage: 20 MG, 2/D
     Route: 048
     Dates: start: 20080514
  10. METFORMIN HCL [Concomitant]
     Indication: TYPE 2 DIABETES MELLITUS
     Dosage: 1000 MG, 2/D
     Dates: start: 20080213, end: 20080421
  11. MELOXICAM [Concomitant]
     Dosage: 15 MG, DAILY (1/D)
     Route: 065
     Dates: start: 20080323, end: 20080421
  12. DARVOCET-N 50 [Concomitant]
     Dosage: 1 D/F, EVERY 4 HRS AS NEEDED
     Route: 048
  13. SINEMET [Concomitant]
  14. MELOXICAM [Concomitant]
     Indication: ARTHRITIS
     Dosage: 15 MG, DAILY (1/D)
     Route: 065
     Dates: start: 20080121, end: 20080219
  15. PRAVACHOL [Concomitant]
     Dosage: 40 MG, DAILY (1/D)
     Route: 048
     Dates: start: 20080323, end: 20080502
  16. PRAVACHOL [Concomitant]
     Dosage: 40 MG, DAILY (1/D)
     Route: 048
     Dates: start: 20080502
  17. ZOCOR [Concomitant]
     Dosage: 20 MG, DAILY (1/D)
  18. TRAZODONE HCL [Concomitant]
     Dosage: 100 MG, EACH EVENING
     Route: 048
     Dates: start: 20080410
  19. RISPERDAL [Concomitant]
     Indication: DEPRESSION
     Dosage: 3 MG, EACH EVENING
     Route: 048
     Dates: start: 20080318, end: 20080410
  20. AVALIDE [Concomitant]
     Dosage: 150 MG, DAILY (1/D)
  21. AVALIDE [Concomitant]
     Dosage: 1 D/F, DAILY (1/D)
     Route: 048
  22. PRAVACHOL [Concomitant]
     Indication: HYPERLIPIDAEMIA
     Dosage: 40 MG, DAILY (1/D)
     Route: 048
     Dates: start: 20080121, end: 20080219
  23. BYETTA [Suspect]
     Dosage: UNK, UNKNOWN
     Route: 065
  24. TRAZODONE HCL [Concomitant]
     Indication: DEPRESSION
     Dosage: 100 MG, EACH EVENING
     Route: 048
     Dates: start: 20080226, end: 20080317
  25. GLYBURIDE [Concomitant]
     Dosage: 5 MG, 2/D

REACTIONS (4)
  - GASTROENTERITIS VIRAL [None]
  - RENAL FAILURE [None]
  - PANCREATITIS ACUTE [None]
  - WEIGHT DECREASED [None]
